FAERS Safety Report 8501799-5 (Version None)
Quarter: 2012Q3

REPORT INFORMATION
  Report Type: 
  Country: None (occurrence: None)
  Receive Date: 20120705
  Receipt Date: 20120705
  Transmission Date: 20120928
  Serious: Yes (Death)
  Sender: FDA-Public Use
  Company Number: None

PATIENT
  Sex: Female
  Weight: 72 kg

DRUGS (2)
  1. RIBAVARIN [Suspect]
     Indication: HEPATITIS C
     Dosage: 500MG BID PO
     Route: 048
  2. PEGASYS [Suspect]
     Indication: HEPATITIS
     Dosage: 180 MCG WEEKLY SQ
     Route: 058
     Dates: start: 20120224, end: 20120607

REACTIONS (3)
  - RESPIRATORY FAILURE [None]
  - LUNG DISORDER [None]
  - LIVER FUNCTION TEST ABNORMAL [None]
